FAERS Safety Report 24771819 (Version 3)
Quarter: 2025Q1

REPORT INFORMATION
  Report Type: Report from Study
  Country: US (occurrence: US)
  Receive Date: 20241224
  Receipt Date: 20250120
  Transmission Date: 20250409
  Serious: Yes (Other)
  Sender: ALEXION PHARMACEUTICALS
  Company Number: US-AstraZeneca-CH-00771174A

PATIENT

DRUGS (1)
  1. ULTOMIRIS [Suspect]
     Active Substance: RAVULIZUMAB-CWVZ
     Route: 065

REACTIONS (6)
  - Multiple sclerosis [Unknown]
  - Chills [Unknown]
  - Musculoskeletal stiffness [Unknown]
  - Back pain [Unknown]
  - Chest pain [Unknown]
  - Myalgia [Unknown]
